FAERS Safety Report 4413730-2 (Version None)
Quarter: 2004Q2

REPORT INFORMATION
  Report Type: 
  Country: None (occurrence: None)
  Receive Date: 20040630
  Receipt Date: 20040408
  Transmission Date: 20050107
  Serious: No
  Sender: FDA-Public Use
  Company Number: 04P-163-0256456-00

PATIENT
  Age: 51 Year
  Sex: Female

DRUGS (11)
  1. HUMIRA [Suspect]
     Indication: RHEUMATOID ARTHRITIS
     Dosage: 40 MG, 1 IN 2 WK, SUBCUTANEOUS
     Route: 058
     Dates: start: 20040101
  2. LEVOTHYROXINE SODIUM [Concomitant]
  3. BENAZEPRIL HCL [Concomitant]
  4. DILTIAZEM HYDROCHLORIDE [Concomitant]
  5. FOLIC ACID [Concomitant]
  6. PREDNISONE [Concomitant]
  7. ROFECOXIB [Concomitant]
  8. PROVELLA-14 [Concomitant]
  9. METHOTREXATE [Concomitant]
  10. MULTI-VITAMINS [Concomitant]
  11. AMITRIPTYLINE HCL [Concomitant]

REACTIONS (1)
  - INJECTION SITE BURNING [None]
